FAERS Safety Report 9510736 (Version 3)
Quarter: 2014Q1

REPORT INFORMATION
  Report Type: Spontaneous
  Country: JP (occurrence: JP)
  Receive Date: 20130910
  Receipt Date: 20140220
  Transmission Date: 20141002
  Serious: Yes (Other)
  Sender: FDA-Public Use
  Company Number: JP-ROCHE-1269321

PATIENT
  Age: 62 Year
  Sex: Male
  Weight: 47 kg

DRUGS (8)
  1. AVASTIN [Suspect]
     Indication: LUNG ADENOCARCINOMA METASTATIC
     Route: 041
     Dates: start: 20130411, end: 20130627
  2. ALIMTA [Suspect]
     Indication: LUNG ADENOCARCINOMA METASTATIC
     Route: 041
     Dates: start: 20130411, end: 20130627
  3. PANVITAN [Concomitant]
     Indication: PROPHYLAXIS
     Route: 048
     Dates: start: 20130325, end: 20130725
  4. FRESMIN S (JAPAN) [Concomitant]
     Indication: PROPHYLAXIS
     Route: 030
     Dates: start: 20130325, end: 20130325
  5. FRESMIN S (JAPAN) [Concomitant]
     Indication: PROPHYLAXIS
     Route: 030
     Dates: start: 20130523, end: 20130523
  6. CARBOPLATIN [Concomitant]
     Indication: LUNG ADENOCARCINOMA METASTATIC
     Route: 041
     Dates: start: 20130411, end: 20130627
  7. ALOXI [Concomitant]
     Indication: PROPHYLAXIS OF NAUSEA AND VOMITING
     Route: 042
     Dates: start: 20130411, end: 20130627
  8. DEXART [Concomitant]
     Indication: PROPHYLAXIS OF NAUSEA AND VOMITING
     Route: 042
     Dates: start: 20130411, end: 20130627

REACTIONS (1)
  - Lung disorder [Recovering/Resolving]
